FAERS Safety Report 8529223 (Version 3)
Quarter: 2012Q4

REPORT INFORMATION
  Report Type: 
  Country: JP (occurrence: JP)
  Receive Date: 20120425
  Receipt Date: 20121112
  Transmission Date: 20130627
  Serious: Yes (Death, Other)
  Sender: FDA-Public Use
  Company Number: JP-ASTELLAS-2012JP003408

PATIENT
  Age: 11 Year
  Sex: Male

DRUGS (12)
  1. PROGRAF [Suspect]
     Indication: IMMUNOSUPPRESSANT DRUG THERAPY
     Route: 048
  2. PROGRAF [Suspect]
     Indication: IMMUNOSUPPRESSANT DRUG THERAPY
     Dosage: 0.02 mg/kg, Unknown/D
     Route: 042
  3. ANTI-CONVULSIVE DRUG [Concomitant]
     Dosage: UNK
     Route: 065
  4. INTRACRANIAL PRESSURE DEPRESSANT [Concomitant]
     Dosage: UNK
     Route: 065
  5. CALCIUM ANTAGONIST [Concomitant]
     Dosage: UNK
     Route: 065
  6. GANCICLOVIR [Concomitant]
     Dosage: UNK
     Route: 042
  7. MELPHALAN [Concomitant]
     Indication: BONE MARROW CONDITIONING REGIMEN
     Dosage: 180 mg/m2, Unknown/D
     Route: 065
  8. METHOTREXATE [Concomitant]
     Indication: PROPHYLAXIS AGAINST GRAFT VERSUS HOST DISEASE
     Dosage: 15 mg/m2, Unknown/D
     Route: 065
  9. METHOTREXATE [Concomitant]
     Dosage: 10 mg/m2, Unknown/D
     Route: 065
  10. METHOTREXATE [Concomitant]
     Dosage: 10 mg/m2, Unknown/D
     Route: 065
  11. METHOTREXATE [Concomitant]
     Dosage: 10 mg/m2, Unknown/D
     Route: 065
  12. METHYLPREDNISOLONE [Concomitant]
     Indication: ENGRAFTMENT SYNDROME
     Dosage: 2 mg/kg, Unknown/D
     Route: 065

REACTIONS (3)
  - Drug ineffective [Unknown]
  - Graft versus host disease [Fatal]
  - Encephalitis herpes [Recovered/Resolved]
